FAERS Safety Report 4688661-3 (Version None)
Quarter: 2005Q2

REPORT INFORMATION
  Report Type: 
  Country: None (occurrence: None)
  Receive Date: 20050610
  Receipt Date: 20050610
  Transmission Date: 20051028
  Serious: No
  Sender: FDA-Public Use
  Company Number: None

PATIENT
  Age: 46 Year
  Sex: Male
  Weight: 121 kg

DRUGS (11)
  1. OLANZAPINE [Suspect]
     Indication: BIPOLAR I DISORDER
     Dosage: 30 MG BEDTIME ORAL
     Route: 048
     Dates: start: 20050203, end: 20050502
  2. OLANZAPINE [Suspect]
  3. ASPIRIN [Concomitant]
  4. CLONAZEPAM [Concomitant]
  5. DEPAKOTE [Concomitant]
  6. LISINOPRIL [Concomitant]
  7. METFORMIN HCL [Concomitant]
  8. NYSTATIN [Concomitant]
  9. SALSALATE [Concomitant]
  10. SERTRALINE HCL [Concomitant]
  11. TRAMADOL HCL [Concomitant]

REACTIONS (2)
  - HUNGER [None]
  - WEIGHT INCREASED [None]
